FAERS Safety Report 6756315-5 (Version None)
Quarter: 2010Q2

REPORT INFORMATION
  Report Type: 
  Country: None (occurrence: None)
  Receive Date: 20100604
  Receipt Date: 20100524
  Transmission Date: 20101027
  Serious: Yes (Hospitalization)
  Sender: FDA-Public Use
  Company Number: US-ROCHE-706135

PATIENT
  Sex: Male

DRUGS (3)
  1. BEVACIZUMAB [Suspect]
     Dosage: LAST DOSE PRIOR TO SAE:03 FEBRUARY 2010
     Route: 065
     Dates: start: 20091110
  2. IRINOTECAN [Suspect]
     Dosage: LAST DOSE PRIOR TO SAE:03 FEBRUARY 2010
     Route: 065
     Dates: start: 20091110
  3. CISPLATIN [Suspect]
     Dosage: LAST DOSE PRIOR TO SAE: 03 FEBRUARY 2010.
     Route: 065
     Dates: start: 20091110

REACTIONS (2)
  - DEHYDRATION [None]
  - OESOPHAGITIS [None]
